FAERS Safety Report 23161648 (Version 1)
Quarter: 2023Q4

REPORT INFORMATION
  Report Type: Spontaneous
  Country: US (occurrence: US)
  Receive Date: 20231108
  Receipt Date: 20231108
  Transmission Date: 20240109
  Serious: No
  Sender: FDA-Public Use
  Company Number: US-ABBVIE-5488164

PATIENT

DRUGS (2)
  1. HUMIRA [Suspect]
     Active Substance: ADALIMUMAB
     Indication: Psoriasis
     Route: 058
  2. HUMIRA [Suspect]
     Active Substance: ADALIMUMAB
     Route: 058

REACTIONS (5)
  - Fluid retention [Unknown]
  - Drug ineffective [Unknown]
  - Psoriasis [Unknown]
  - COVID-19 [Unknown]
  - Serum sickness [Unknown]

NARRATIVE: CASE EVENT DATE: 20190101
